FAERS Safety Report 7630360-X (Version None)
Quarter: 2011Q3

REPORT INFORMATION
  Report Type: 
  Country: None (occurrence: None)
  Receive Date: 20110722
  Receipt Date: 20110701
  Transmission Date: 20111222
  Serious: Yes (Hospitalization)
  Sender: FDA-Public Use
  Company Number: US-GLAXOSMITHKLINE-A0809165A

PATIENT
  Age: 69 Year
  Sex: Female

DRUGS (7)
  1. DUONEB [Concomitant]
  2. ALTACE [Concomitant]
  3. LASIX [Concomitant]
  4. AVANDIA [Suspect]
     Indication: DIABETES MELLITUS
     Dosage: 4MG TWICE PER DAY
     Route: 048
     Dates: start: 20030201, end: 20070901
  5. ALBUTEROL SULFATE AUTOHALER [Concomitant]
  6. IBUPROFEN (ADVIL) [Concomitant]
  7. TOPROL-XL [Concomitant]

REACTIONS (4)
  - FLUID RETENTION [None]
  - CARDIAC FAILURE CONGESTIVE [None]
  - MYOCARDIAL INFARCTION [None]
  - CORONARY ARTERY DISEASE [None]
